FAERS Safety Report 6455309-7 (Version None)
Quarter: 2009Q4

REPORT INFORMATION
  Report Type: 
  Country: None (occurrence: None)
  Receive Date: 20091125
  Receipt Date: 20091026
  Transmission Date: 20100525
  Serious: No
  Sender: FDA-Public Use
  Company Number: US-ABBOTT-09P-163-0605034-00

PATIENT
  Sex: Male
  Weight: 113.5 kg

DRUGS (11)
  1. SIMCOR [Suspect]
     Indication: BLOOD CHOLESTEROL INCREASED
  2. PLAVIX [Concomitant]
     Indication: DRUG USE FOR UNKNOWN INDICATION
  3. ALLOPURINOL [Concomitant]
     Indication: DRUG USE FOR UNKNOWN INDICATION
  4. DIOVAN [Concomitant]
     Indication: DRUG USE FOR UNKNOWN INDICATION
  5. METOPROLOL TARTRATE [Concomitant]
     Indication: DRUG USE FOR UNKNOWN INDICATION
  6. ASPIRIN [Concomitant]
     Indication: DRUG USE FOR UNKNOWN INDICATION
  7. ZOLOFT [Concomitant]
     Indication: DRUG USE FOR UNKNOWN INDICATION
  8. MELOXICAM [Concomitant]
     Indication: DRUG USE FOR UNKNOWN INDICATION
  9. FLEXERIL [Concomitant]
     Indication: DRUG USE FOR UNKNOWN INDICATION
  10. LORTAB [Concomitant]
     Indication: DRUG USE FOR UNKNOWN INDICATION
  11. TYLENOL [Concomitant]
     Indication: DRUG USE FOR UNKNOWN INDICATION
     Dosage: AT BEDTIME

REACTIONS (2)
  - FLUSHING [None]
  - PRURITUS [None]
